FAERS Safety Report 8995993 (Version 1)
Quarter: 2013Q1

REPORT INFORMATION
  Report Type: Spontaneous
  Country: US (occurrence: US)
  Receive Date: 20130103
  Receipt Date: 20130103
  Transmission Date: 20140127
  Serious: No
  Sender: FDA-Public Use
  Company Number: US-ABBOTT-12P-163-0999886-00

PATIENT
  Sex: Female
  Weight: 60.84 kg

DRUGS (3)
  1. SYNTHROID [Suspect]
     Indication: HYPOTHYROIDISM
     Dates: start: 1992
  2. SYNTHROID [Suspect]
     Dosage: SEVERAL DOSES IN FIRST 5 YEARS OF THERAPY.
     Dates: start: 1987, end: 1992
  3. CALCIUM [Concomitant]
     Indication: MINERAL SUPPLEMENTATION

REACTIONS (1)
  - Cough [Not Recovered/Not Resolved]
